FAERS Safety Report 19743784 (Version 1)
Quarter: 2021Q3

REPORT INFORMATION
  Report Type: Spontaneous
  Country: US (occurrence: US)
  Receive Date: 20210824
  Receipt Date: 20210824
  Transmission Date: 20211014
  Serious: Yes (Other)
  Sender: FDA-Public Use
  Company Number: US-BAXTER-2021BAX026341

PATIENT
  Age: 30 Year
  Sex: Female

DRUGS (1)
  1. HEPARIN SODIUM IN 0.9% SODIUM CHLORIDE [Suspect]
     Active Substance: HEPARIN SODIUM\SODIUM CHLORIDE
     Indication: PRODUCT USED FOR UNKNOWN INDICATION
     Dosage: INFUSION RATE: 19.4ML/H
     Route: 065
     Dates: start: 20210417

REACTIONS (3)
  - Adverse event [Unknown]
  - Blood pressure decreased [Unknown]
  - Thrombosis [Unknown]

NARRATIVE: CASE EVENT DATE: 20210417
